FAERS Safety Report 4827085-2 (Version None)
Quarter: 2005Q4

REPORT INFORMATION
  Report Type: 
  Country: None (occurrence: None)
  Receive Date: 20051114
  Receipt Date: 20051020
  Transmission Date: 20060501
  Serious: Yes (Other)
  Sender: FDA-Public Use
  Company Number: FRPFM-S-20050294

PATIENT
  Age: 55 Year
  Sex: Female

DRUGS (15)
  1. NAVELBINE [Suspect]
     Dosage: 30MG PER DAY
     Route: 042
     Dates: start: 20050928
  2. CISPLATIN [Concomitant]
     Dates: start: 20050928, end: 20050930
  3. ONDANSETRON [Concomitant]
     Dates: start: 20050928
  4. SOLU-MEDROL [Concomitant]
     Dates: start: 20050928
  5. TARDYFERON [Concomitant]
  6. TORENTAL [Concomitant]
  7. RIVOTRIL [Concomitant]
  8. PROFENID [Concomitant]
  9. DOLIPRANE [Concomitant]
  10. MOPRAL [Concomitant]
  11. TRAMADOL HCL [Concomitant]
  12. IMOVANE [Concomitant]
  13. FONZYLANE [Concomitant]
  14. NEURONTIN [Concomitant]
  15. SINTROM [Concomitant]

REACTIONS (2)
  - INJECTION SITE PAIN [None]
  - PAIN [None]
